FAERS Safety Report 25677004 (Version 2)
Quarter: 2025Q3

REPORT INFORMATION
  Report Type: Spontaneous
  Country: US (occurrence: US)
  Receive Date: 20250813
  Receipt Date: 20250915
  Transmission Date: 20251021
  Serious: No
  Sender: SANOFI AVENTIS
  Company Number: US-SA-2025SA235062

PATIENT
  Age: 78 Year
  Sex: Female
  Weight: 78.05 kg

DRUGS (17)
  1. KEVZARA [Suspect]
     Active Substance: SARILUMAB
     Indication: Polymyalgia rheumatica
     Dosage: 200 MG, QOW
     Route: 058
     Dates: start: 20250724
  2. LISINOPRIL [Concomitant]
     Active Substance: LISINOPRIL
  3. PREDNISONE [Concomitant]
     Active Substance: PREDNISONE
  4. BUPROPION [Concomitant]
     Active Substance: BUPROPION
  5. CALCIUM [Concomitant]
     Active Substance: CALCIUM
  6. BIOTIN [Concomitant]
     Active Substance: BIOTIN
  7. ROSUVASTATIN CALCIUM [Concomitant]
     Active Substance: ROSUVASTATIN CALCIUM
  8. ACYCLOVIR [Concomitant]
     Active Substance: ACYCLOVIR
  9. VITAMINS [Concomitant]
     Active Substance: VITAMINS
  10. MELATONIN [Concomitant]
     Active Substance: MELATONIN
  11. VITAMIN D3 [Concomitant]
     Active Substance: CHOLECALCIFEROL
  12. LEVOTHYROXINE SODIUM [Concomitant]
     Active Substance: LEVOTHYROXINE SODIUM
  13. SERTRALINE HYDROCHLORIDE [Concomitant]
     Active Substance: SERTRALINE HYDROCHLORIDE
  14. DICLOFENAC SODIUM [Concomitant]
     Active Substance: DICLOFENAC SODIUM
  15. ASPIRIN [Concomitant]
     Active Substance: ASPIRIN
  16. REPATHA [Concomitant]
     Active Substance: EVOLOCUMAB
  17. FA 8 [Concomitant]

REACTIONS (3)
  - Injection site exfoliation [Recovered/Resolved]
  - Injection site erythema [Recovered/Resolved]
  - Inappropriate schedule of product administration [Unknown]

NARRATIVE: CASE EVENT DATE: 20250101
